FAERS Safety Report 8333839-0 (Version None)
Quarter: 2012Q2

REPORT INFORMATION
  Report Type: 
  Country: None (occurrence: None)
  Receive Date: 20120503
  Receipt Date: 20120425
  Transmission Date: 20120825
  Serious: Yes (Hospitalization)
  Sender: FDA-Public Use
  Company Number: US-PFIZER INC-2012104997

PATIENT
  Sex: Male
  Weight: 68.3 kg

DRUGS (9)
  1. ACETYLSALICYLIC ACID [Concomitant]
  2. ZANTAC [Concomitant]
  3. ATIVAN [Concomitant]
  4. DOXAZOSIN [Concomitant]
  5. DOXORUBICIN HCL [Suspect]
     Indication: SOFT TISSUE NEOPLASM
     Dosage: 134 MG, UNK
     Dates: start: 20120403
  6. TEMAZEPAM [Concomitant]
  7. MUCINEX [Concomitant]
  8. FINASTERIDE [Concomitant]
  9. TYLENOL (CAPLET) [Concomitant]

REACTIONS (9)
  - TACHYCARDIA [None]
  - AZOTAEMIA [None]
  - DYSPNOEA [None]
  - PYREXIA [None]
  - NEUTROPENIA [None]
  - NEOPLASM PROGRESSION [None]
  - HYPONATRAEMIA [None]
  - TACHYPNOEA [None]
  - SARCOMA [None]
